FAERS Safety Report 4327801-2 (Version None)
Quarter: 2004Q1

REPORT INFORMATION
  Report Type: 
  Country: None (occurrence: None)
  Receive Date: 20040325
  Receipt Date: 20040309
  Transmission Date: 20041129
  Serious: Yes (Other)
  Sender: FDA-Public Use
  Company Number: AU-JNJFOC-20040304470

PATIENT
  Age: 61 Year
  Sex: Female

DRUGS (1)
  1. TRAMAL (TRAMADOL HYDROCHLORIDE) UNSPECIFIED [Suspect]
     Indication: GENERAL SYMPTOM
     Dosage: 200 MG,  IN 1 DAY, ORAL
     Route: 048
     Dates: start: 20030613, end: 20030613

REACTIONS (1)
  - PANIC ATTACK [None]
